FAERS Safety Report 5952670-4 (Version None)
Quarter: 2008Q4

REPORT INFORMATION
  Report Type: 
  Country: None (occurrence: None)
  Receive Date: 20081031
  Receipt Date: 20080627
  Transmission Date: 20090506
  Serious: No
  Sender: FDA-Public Use
  Company Number: 2008-US-000311

PATIENT
  Age: 8 Year
  Weight: 23.6 kg

DRUGS (6)
  1. INCRELEX [Suspect]
     Indication: INSULIN-LIKE GROWTH FACTOR INCREASED
     Dosage: 19 UNITS, BID, SUBCUTANEOUS, 28 UNITS, BID, SUBCUTANEOUS
     Route: 058
     Dates: end: 20080515
  2. INCRELEX [Suspect]
     Indication: INSULIN-LIKE GROWTH FACTOR INCREASED
     Dosage: 19 UNITS, BID, SUBCUTANEOUS, 28 UNITS, BID, SUBCUTANEOUS
     Route: 058
     Dates: start: 20080326
  3. PROBIOTICA (LACTOBACILLUS REUTER) [Concomitant]
  4. SELENIUM (SELENIUM) [Concomitant]
  5. OMEGA-3 FATTY ACIDS (OMEGA-3 FATTY ACIDS) [Concomitant]
  6. METAMUCIL /00029101/ (PLANTAGO OVATA) [Concomitant]

REACTIONS (4)
  - INJECTION SITE ERYTHEMA [None]
  - INJECTION SITE PAIN [None]
  - INJECTION SITE PRURITUS [None]
  - INJECTION SITE URTICARIA [None]
